FAERS Safety Report 13285521 (Version 1)
Quarter: 2017Q1

REPORT INFORMATION
  Report Type: Spontaneous
  Country: US (occurrence: US)
  Receive Date: 20170302
  Receipt Date: 20170302
  Transmission Date: 20170428
  Serious: No
  Sender: FDA-Public Use
  Company Number: US-BAYER-2017-039286

PATIENT
  Age: 85 Year
  Sex: Female
  Weight: 50 kg

DRUGS (1)
  1. CHLOR-TRIMETON 12 HOUR [Suspect]
     Active Substance: CHLORPHENIRAMINE MALEATE
     Dosage: 0.5 DF, QD
     Route: 048

REACTIONS (1)
  - Product use issue [Unknown]
